FAERS Safety Report 6172313-7 (Version None)
Quarter: 2009Q2

REPORT INFORMATION
  Report Type: 
  Country: None (occurrence: None)
  Receive Date: 20090429
  Receipt Date: 20080328
  Transmission Date: 20091009
  Serious: No
  Sender: FDA-Public Use
  Company Number: A0718090A

PATIENT
  Sex: Female

DRUGS (3)
  1. AMERGE [Suspect]
     Indication: MIGRAINE
     Dosage: 2.5MG AS REQUIRED
     Route: 048
     Dates: start: 20030101, end: 20030101
  2. AVALIDE [Concomitant]
  3. NORVASC [Concomitant]

REACTIONS (2)
  - FEELING ABNORMAL [None]
  - SOMNOLENCE [None]
